FAERS Safety Report 19710694 (Version 2)
Quarter: 2021Q3

REPORT INFORMATION
  Report Type: Spontaneous
  Country: BR (occurrence: US)
  Receive Date: 20210817
  Receipt Date: 20210914
  Transmission Date: 20211014
  Serious: Yes (Other)
  Sender: FDA-Public Use
  Company Number: US-VERICEL-US-VCEL-20-002599

PATIENT
  Sex: Male

DRUGS (1)
  1. CARTICEL [Suspect]
     Active Substance: AUTOLOGOUS CULTURED CHONDROCYTES
     Indication: JOINT INJURY
     Dosage: UNK
     Route: 065
     Dates: start: 20080716

REACTIONS (1)
  - Transplant failure [Unknown]
